FAERS Safety Report 18394939 (Version 1)
Quarter: 2020Q4

REPORT INFORMATION
  Report Type: Other
  Country: DE (occurrence: DE)
  Receive Date: 20201016
  Receipt Date: 20201016
  Transmission Date: 20210114
  Serious: Yes (Hospitalization, Other)
  Sender: FDA-Public Use
  Company Number: DE-SERVIER-S20010313

PATIENT

DRUGS (7)
  1. TN UNSPECIFIED [Concomitant]
     Indication: T-CELL TYPE ACUTE LEUKAEMIA
     Dosage: 12 MG ON DAYS 1, 12 AND 33
     Route: 037
  2. TN UNSPECIFIED [Concomitant]
     Indication: T-CELL TYPE ACUTE LEUKAEMIA
     Dosage: 1000 MG/M2 CYCLOPHOSPHAMIDE ON DAY 2 OF INDUCTION TREATMENT
  3. TN UNSPECIFIED [PREDNISOLONE] [Suspect]
     Active Substance: PREDNISOLONE
     Indication: T-CELL TYPE ACUTE LEUKAEMIA
     Dosage: TAPERING ON DAYS 29 TO 37
  4. TN UNSPECIFIED [PREDNISOLONE] [Suspect]
     Active Substance: PREDNISOLONE
     Dosage: 60 MG/M2/DAY  FOR 28 DAYS
  5. TN UNSPECIFIED [Concomitant]
     Indication: T-CELL TYPE ACUTE LEUKAEMIA
     Dosage: 30 MG/M2 ON DAYS 8, 15, 22 AND 29
  6. TN UNSPECIFIED [Concomitant]
     Indication: T-CELL TYPE ACUTE LEUKAEMIA
     Dosage: 2 MG ON DAYS 8, 15, 22 AND 29
  7. PEGASPARGASE [Suspect]
     Active Substance: PEGASPARGASE
     Indication: T-CELL TYPE ACUTE LEUKAEMIA
     Dosage: 2500 UNITS/M2 ON DAYS 12 AND 26
     Route: 042

REACTIONS (6)
  - Hypertriglyceridaemia [Recovered/Resolved]
  - Acute abdomen [Unknown]
  - Volvulus [Recovered/Resolved]
  - Inappropriate antidiuretic hormone secretion [Unknown]
  - Pancreatitis [Unknown]
  - Hyponatraemia [Recovered/Resolved]

NARRATIVE: CASE EVENT DATE: 2020
